FAERS Safety Report 5154570-9 (Version None)
Quarter: 2006Q4

REPORT INFORMATION
  Report Type: 
  Country: None (occurrence: None)
  Receive Date: 20061114
  Receipt Date: 20061027
  Transmission Date: 20070319
  Serious: Yes (Other)
  Sender: FDA-Public Use
  Company Number: 2006BM000170

PATIENT
  Age: 36 Year
  Sex: Male

DRUGS (3)
  1. PREDNISOLONE [Suspect]
     Indication: PEMPHIGUS
     Dosage: 120 MG; QD
  2. ORAPRED [Suspect]
  3. AZATHIOPRINE [Concomitant]

REACTIONS (5)
  - CHORIORETINOPATHY [None]
  - DIABETES MELLITUS [None]
  - DISEASE RECURRENCE [None]
  - OSTEOPOROSIS [None]
  - PEMPHIGUS [None]
